FAERS Safety Report 5423589-2 (Version None)
Quarter: 2007Q3

REPORT INFORMATION
  Report Type: 
  Country: None (occurrence: None)
  Receive Date: 20070823
  Receipt Date: 20070815
  Transmission Date: 20080115
  Serious: Yes (Hospitalization)
  Sender: FDA-Public Use
  Company Number: US-AVENTIS-200717514GDDC

PATIENT
  Age: 80 Year
  Sex: Male
  Weight: 68.54 kg

DRUGS (20)
  1. DOCETAXEL [Suspect]
     Dosage: DOSE: 141.75 MG (TOTAL DAILY DOSE)
     Route: 042
     Dates: start: 20070625
  2. MONOCLONAL ANTIBODIES [Suspect]
     Dosage: DOSE: (1500 MG TOTAL DAILY DOSE)
     Route: 042
     Dates: start: 20070625
  3. PREDNISONE TAB [Suspect]
     Route: 048
     Dates: start: 20070424
  4. LUPRON [Concomitant]
     Dosage: DOSE: UNK
     Route: 030
     Dates: start: 20020901
  5. VASOTEC                            /00935901/ [Concomitant]
     Route: 048
     Dates: start: 20050101
  6. ATENOLOL [Concomitant]
     Dosage: DOSE: UNK
     Route: 048
     Dates: start: 20060801
  7. PLAVIX [Concomitant]
     Route: 048
     Dates: start: 20060101
  8. ACIDOPHILUS [Concomitant]
     Dosage: DOSE: UNK
     Route: 048
  9. OS-CAL                             /00188401/ [Concomitant]
     Dosage: DOSE: UNK
     Route: 048
     Dates: start: 20070301
  10. NEXIUM [Concomitant]
     Dosage: DOSE: UNK
     Route: 048
  11. ZETIA [Concomitant]
     Dosage: DOSE: UNK
     Route: 048
     Dates: start: 20060101
  12. TYLENOL [Concomitant]
     Dosage: DOSE: UNK
     Route: 048
     Dates: start: 20070409, end: 20070719
  13. COLACE [Concomitant]
     Dosage: DOSE: UNK
     Route: 048
     Dates: start: 20070409
  14. SENOKOT                            /00142201/ [Concomitant]
     Dosage: DOSE: UNK
     Route: 048
     Dates: start: 20070409
  15. LOPERAMIDE HYDROCHLORIDE [Concomitant]
     Dosage: DOSE: UNK
     Route: 048
     Dates: start: 20070409
  16. AMBIEN [Concomitant]
     Dosage: DOSE: UNK
     Route: 048
  17. NITROGLYCERIN [Concomitant]
     Dosage: DOSE: UNK
     Route: 060
  18. CALCIUM CARBONATE [Concomitant]
     Dosage: DOSE: UNK
     Route: 048
     Dates: start: 20070314
  19. DECADRON [Concomitant]
     Dosage: DOSE: UNK
     Route: 048
     Dates: start: 20070314
  20. ZOMETA [Concomitant]
     Dosage: DOSE: UNK
     Route: 042
     Dates: start: 20070314

REACTIONS (5)
  - CHEST PAIN [None]
  - DYSPNOEA [None]
  - HYPONATRAEMIA [None]
  - HYPOTENSION [None]
  - NEUTROPENIA [None]
